FAERS Safety Report 4747510-5 (Version None)
Quarter: 2005Q3

REPORT INFORMATION
  Report Type: 
  Country: None (occurrence: None)
  Receive Date: 20050818
  Receipt Date: 20050707
  Transmission Date: 20060218
  Serious: Yes (Death, Hospitalization, Other)
  Sender: FDA-Public Use
  Company Number: BE-BRISTOL-MYERS SQUIBB COMPANY-13032446

PATIENT
  Age: 79 Year
  Sex: Male
  Weight: 73 kg

DRUGS (11)
  1. CARBOPLATIN [Suspect]
     Indication: LUNG NEOPLASM
     Route: 042
     Dates: start: 20050627, end: 20050627
  2. NAVELBINE [Concomitant]
  3. CORDARONE [Concomitant]
  4. CORUNO [Concomitant]
  5. COZAAR [Concomitant]
  6. LANITOP [Concomitant]
  7. PERSANTINE [Concomitant]
  8. BISOLVON [Concomitant]
  9. BETASERC [Concomitant]
  10. ASPEGIC 325 [Concomitant]
  11. ACEDICONE [Concomitant]

REACTIONS (4)
  - CARDIAC ARREST [None]
  - CARDIAC FAILURE [None]
  - FEBRILE NEUTROPENIA [None]
  - RENAL FAILURE [None]
